FAERS Safety Report 5595763-6 (Version None)
Quarter: 2008Q1

REPORT INFORMATION
  Report Type: 
  Country: None (occurrence: None)
  Receive Date: 20080118
  Receipt Date: 20080111
  Transmission Date: 20080703
  Serious: Yes (Other)
  Sender: FDA-Public Use
  Company Number: B0493713A

PATIENT
  Age: 43 Year
  Sex: Male

DRUGS (3)
  1. PAROXETINE [Suspect]
     Indication: MAJOR DEPRESSION
     Route: 048
  2. AMOXAPINE [Suspect]
     Indication: MAJOR DEPRESSION
     Route: 048
  3. CLOMIPRAMINE HYDROCHLORIDE [Suspect]
     Indication: MAJOR DEPRESSION
     Route: 065

REACTIONS (7)
  - ACTIVATION SYNDROME [None]
  - AGGRESSION [None]
  - ANGER [None]
  - EUPHORIC MOOD [None]
  - INSOMNIA [None]
  - IRRITABILITY [None]
  - MOOD ALTERED [None]
